FAERS Safety Report 7750764-4 (Version None)
Quarter: 2011Q3

REPORT INFORMATION
  Report Type: 
  Country: None (occurrence: None)
  Receive Date: 20110914
  Receipt Date: 20110128
  Transmission Date: 20111222
  Serious: Yes (Hospitalization, Other)
  Sender: FDA-Public Use
  Company Number: US-JNJFOC-20101005943

PATIENT
  Sex: Female
  Weight: 79.2 kg

DRUGS (24)
  1. MICROGESTIN FE 1.5/30 [Suspect]
     Route: 048
     Dates: start: 20050322, end: 20060329
  2. LEVLEN 28 [Suspect]
     Route: 048
     Dates: start: 20050307, end: 20060202
  3. CLARITIN [Concomitant]
     Indication: HYPERSENSITIVITY
     Route: 048
     Dates: start: 19980101
  4. FLUOCINONIDE [Concomitant]
     Route: 065
     Dates: start: 20050323, end: 20051213
  5. FLUNISOLIDE [Concomitant]
     Route: 045
     Dates: start: 20060223, end: 20070223
  6. LEVLEN 28 [Suspect]
     Indication: PRODUCT USED FOR UNKNOWN INDICATION
     Route: 048
     Dates: start: 20050307, end: 20060207
  7. FLUNISOLIDE [Concomitant]
     Route: 045
     Dates: start: 20060223, end: 20060331
  8. FLUNISOLIDE [Concomitant]
     Route: 045
     Dates: start: 20061219, end: 20071219
  9. ORTHO-NOVUM 1/50 21 [Suspect]
     Indication: CONTRACEPTION
     Route: 048
     Dates: start: 19740101, end: 19840101
  10. MICROGESTIN FE 1.5/30 [Suspect]
     Route: 048
     Dates: start: 20050322, end: 20060223
  11. RETIN-A MICRO [Concomitant]
     Route: 061
     Dates: start: 20061219, end: 20071219
  12. FLUNISOLIDE [Concomitant]
     Route: 045
     Dates: start: 20061003, end: 20061003
  13. FLUOCINONIDE [Concomitant]
     Route: 065
     Dates: start: 20061219, end: 20071219
  14. RETIN-A MICRO [Concomitant]
     Route: 061
     Dates: start: 20051213, end: 20061222
  15. FLUNISOLIDE [Concomitant]
     Route: 045
     Dates: start: 20060622, end: 20070622
  16. RETIN-A MICRO [Concomitant]
     Route: 061
     Dates: start: 20050323, end: 20051213
  17. FLUNISOLIDE [Concomitant]
     Route: 045
     Dates: start: 20060223, end: 20070223
  18. MICROGESTIN FE 1.5/30 [Suspect]
     Indication: PRODUCT USED FOR UNKNOWN INDICATION
     Route: 048
     Dates: start: 20050322, end: 20060227
  19. MICROGESTIN FE 1.5/30 [Suspect]
     Route: 048
     Dates: start: 20060327, end: 20070327
  20. MICROGESTIN FE 1.5/30 [Suspect]
     Route: 048
     Dates: start: 20050322, end: 20060202
  21. FLUOCINONIDE [Concomitant]
     Route: 065
     Dates: start: 20051213, end: 20061105
  22. FLUNISOLIDE [Concomitant]
     Route: 045
     Dates: start: 20061120, end: 20071120
  23. FLUNISOLIDE [Concomitant]
     Route: 045
     Dates: start: 20060223, end: 20060331
  24. FLUNISOLIDE [Concomitant]
     Route: 045
     Dates: start: 20050823, end: 20060202

REACTIONS (6)
  - MENSTRUATION IRREGULAR [None]
  - BREAST CYST [None]
  - BREAST CALCIFICATIONS [None]
  - COMPUTERISED TOMOGRAM ABNORMAL [None]
  - BREAST CANCER IN SITU [None]
  - ULTRASOUND SCAN ABNORMAL [None]
